FAERS Safety Report 9854711 (Version 1)
Quarter: 2014Q1

REPORT INFORMATION
  Report Type: Spontaneous
  Country: US (occurrence: US)
  Receive Date: 20140130
  Receipt Date: 20140130
  Transmission Date: 20141002
  Serious: No
  Sender: FDA-Public Use
  Company Number: US-009507513-1401USA012543

PATIENT
  Sex: Female
  Weight: 92.63 kg

DRUGS (1)
  1. NUVARING [Suspect]
     Dosage: UNK
     Route: 067
     Dates: start: 20140113

REACTIONS (2)
  - Drug administered at inappropriate site [Unknown]
  - No adverse event [Unknown]
